FAERS Safety Report 12099485 (Version 1)
Quarter: 2016Q1

REPORT INFORMATION
  Report Type: Spontaneous
  Country: US (occurrence: None)
  Receive Date: 20160218
  Receipt Date: 20160218
  Transmission Date: 20160526
  Serious: Yes (Life-Threatening, Hospitalization, Disabling)
  Sender: FDA-Public Use
  Company Number: None

PATIENT
  Age: 68 Year
  Sex: Female
  Weight: 117.03 kg

DRUGS (28)
  1. PROMETHAZINE [Concomitant]
     Active Substance: PROMETHAZINE\PROMETHAZINE HYDROCHLORIDE
  2. LIDOCAINE/PRILOCAINE OINTMENT [Concomitant]
  3. T-RELIEF [Concomitant]
  4. TIMOLOL MALEATE. [Concomitant]
     Active Substance: TIMOLOL MALEATE
  5. XARELTO [Concomitant]
     Active Substance: RIVAROXABAN
  6. CRANBERRY PILL [Concomitant]
  7. EQUATE ARTHRICREAM RUB [Concomitant]
  8. RANITINE [Concomitant]
  9. ONDANSETRON [Concomitant]
     Active Substance: ONDANSETRON
  10. RESTASIS [Concomitant]
     Active Substance: CYCLOSPORINE
  11. L-LYSINE [Concomitant]
     Active Substance: LYSINE
  12. VIT.D [Concomitant]
  13. COLACE [Concomitant]
     Active Substance: DOCUSATE SODIUM
  14. POTASIUM [Concomitant]
  15. MIRALAX [Concomitant]
     Active Substance: POLYETHYLENE GLYCOL 3350
  16. GLUCOSAMIN/CHONDROITIN [Concomitant]
  17. GUANFACINE. [Concomitant]
     Active Substance: GUANFACINE
  18. AZO [Concomitant]
     Active Substance: PHENAZOPYRIDINE HYDROCHLORIDE
  19. ECHINACA [Concomitant]
  20. JOINT FLEX [Concomitant]
  21. BACTRIM [Suspect]
     Active Substance: SULFAMETHOXAZOLE\TRIMETHOPRIM
     Indication: URINARY TRACT INFECTION
     Route: 048
     Dates: start: 20141001, end: 20141008
  22. TEMAZEPAM. [Concomitant]
     Active Substance: TEMAZEPAM
  23. MENDESOHN QUALFIEST [Concomitant]
  24. LEVOTHYROXINE. [Concomitant]
     Active Substance: LEVOTHYROXINE
  25. DILAUDID [Concomitant]
     Active Substance: HYDROMORPHONE HYDROCHLORIDE
  26. FIBERCON [Concomitant]
     Active Substance: CALCIUM POLYCARBOPHIL
  27. GABAPENTIN. [Concomitant]
     Active Substance: GABAPENTIN
  28. MULTI VITAMIN [Concomitant]
     Active Substance: VITAMINS

REACTIONS (11)
  - Blister [None]
  - Vision blurred [None]
  - Skin exfoliation [None]
  - Pyrexia [None]
  - Diarrhoea [None]
  - Blood pressure decreased [None]
  - Eye infection [None]
  - Drug hypersensitivity [None]
  - Pain [None]
  - Diplopia [None]
  - Vomiting [None]

NARRATIVE: CASE EVENT DATE: 20141012
